FAERS Safety Report 19585475 (Version 1)
Quarter: 2021Q3

REPORT INFORMATION
  Report Type: Report from Study
  Country: CA (occurrence: CA)
  Receive Date: 20210720
  Receipt Date: 20210720
  Transmission Date: 20211014
  Serious: Yes (Hospitalization)
  Sender: FDA-Public Use
  Company Number: CA-HLS-202108007

PATIENT
  Age: 46 Year
  Sex: Female

DRUGS (28)
  1. QUETIAPINE. [Concomitant]
     Active Substance: QUETIAPINE
     Indication: PRODUCT USED FOR UNKNOWN INDICATION
     Dosage: 50 MG =2 TAB BY MOUTH EVERY ONE HOUR AS NEEDED
     Route: 048
  2. BENZTROPINE. [Concomitant]
     Active Substance: BENZTROPINE
     Indication: PRODUCT USED FOR UNKNOWN INDICATION
     Dosage: HALF TABLET (=0.5MG) TABLET BY MOUTH  TWICE DAILY (MORNING AND BEDTIME)
     Route: 048
  3. LACTULOSE ORAL LIQUID [Concomitant]
     Indication: PRODUCT USED FOR UNKNOWN INDICATION
     Dosage: 15?30 ML BY MOUTH DAILY AS NEEDED
     Route: 048
  4. LORAZEPAM. [Concomitant]
     Active Substance: LORAZEPAM
     Indication: AGITATION
     Dosage: 1?2 MG BY MOUTH EVERY 1 HOUR AS NEEDED
     Route: 060
  5. LITHIUM CARBONATE. [Concomitant]
     Active Substance: LITHIUM CARBONATE
     Indication: PRODUCT USED FOR UNKNOWN INDICATION
     Dosage: 600 MG =2 CAPSULES BY MOUTH AT BEDTIME.
     Route: 048
  6. ZUCLOPENTHIXOL DECANOATE [Concomitant]
     Active Substance: ZUCLOPENTHIXOL DECANOATE
     Indication: PRODUCT USED FOR UNKNOWN INDICATION
     Dosage: 200 MG/ML , 250 MG =1.25 ML IN EVERY OTHER WEEK
     Route: 030
  7. BENZTROPINE. [Concomitant]
     Active Substance: BENZTROPINE
     Indication: PRODUCT USED FOR UNKNOWN INDICATION
     Dosage: 1?2 MG BY MOUTH TWICE A DAY AS NEEDED.
     Route: 048
  8. VITAMIN D3 [Concomitant]
     Active Substance: CHOLECALCIFEROL
     Indication: PRODUCT USED FOR UNKNOWN INDICATION
     Dosage: 1000 UNIT =1 TABLET BY MOUTH AT BEDTIME CHOLECALCIFEROL
     Route: 048
  9. LOXAPINE. [Concomitant]
     Active Substance: LOXAPINE
     Dosage: 25 MG= 1 TABLETS BY MOUTH EVERY 2 HOURS AS NEEDED.
     Route: 048
  10. SENNOSIDE TAB [Concomitant]
     Indication: PRODUCT USED FOR UNKNOWN INDICATION
     Dosage: 12?24 MG TAB AT BEDTIME AS NEEDED
     Route: 048
  11. LITHIUM CARBONATE. [Concomitant]
     Active Substance: LITHIUM CARBONATE
     Indication: PRODUCT USED FOR UNKNOWN INDICATION
     Dosage: ONE CAPSULE BY MOUTH EACH MORNING.
     Route: 048
  12. NICOTINE LOZENGE [Concomitant]
     Active Substance: NICOTINE
     Indication: PRODUCT USED FOR UNKNOWN INDICATION
     Dosage: 4 MG = 2 LOZENGES BUCALLY EVERY ONE HOUR AS NEEDED
     Route: 002
  13. LORAZEPAM. [Concomitant]
     Active Substance: LORAZEPAM
     Indication: AGITATION
     Dosage: 4 MG/ML = 1?2 MG IN EVERY ONE HOUR AS NEEDED. (0.25?0.5 ML INTRAMUSCULAR EVERY ONE HOUR AS NEEDED)
     Route: 030
  14. LORAZEPAM. [Concomitant]
     Active Substance: LORAZEPAM
     Indication: ANXIETY
     Dosage: 4 MG/ML = 1?2 MG IN EVERY ONE HOUR AS NEEDED. (0.25?0.5 ML INTRAMUSCULAR EVERY ONE HOUR AS NEEDED)
     Route: 030
  15. ACETAMINOPHEN. [Concomitant]
     Active Substance: ACETAMINOPHEN
     Indication: PYREXIA
     Dosage: 650 MG =2 TABLETS BY MOUTH EVERY 4 HOURS AS NEEDED
     Route: 048
  16. ACETAMINOPHEN. [Concomitant]
     Active Substance: ACETAMINOPHEN
     Indication: PAIN
     Dosage: 650 MG =2 TABLETS BY MOUTH EVERY 4 HOURS AS NEEDED
     Route: 048
  17. LOAXAPINE [Concomitant]
     Indication: PRODUCT USED FOR UNKNOWN INDICATION
     Dosage: 50 MG/ML INJ , 0.5 ML IN EVERY 2 HOURS AS NEEDED; IF NOT GIVEN BY MOUTH .
     Route: 030
  18. DIOVOL PLUS [Concomitant]
     Indication: DYSPEPSIA
     Dosage: 15?30 ML BY MOUTH EVERY 4 HOURS AS NEEDED.
     Route: 048
  19. LORAZEPAM. [Concomitant]
     Active Substance: LORAZEPAM
     Indication: ANXIETY
     Dosage: 1?2 MG BY MOUTH EVERY 1 HOUR AS NEEDED
     Route: 060
  20. DIMENHYDRINATE. [Concomitant]
     Active Substance: DIMENHYDRINATE
     Indication: NAUSEA
     Dosage: 50 MG/ML INJ = 1 ML IM/SC EVERY 6 HOURS AS NEEDED
     Route: 030
  21. PEG 3350 [Concomitant]
     Active Substance: POLYETHYLENE GLYCOL 3350
     Indication: PRODUCT USED FOR UNKNOWN INDICATION
     Dosage: IN THE MORNING AS NEEDED.
     Route: 048
  22. QUETIAPINE. [Concomitant]
     Active Substance: QUETIAPINE
     Indication: PRODUCT USED FOR UNKNOWN INDICATION
     Dosage: 1200 MG = 4 TABLET BY MOUTH EACH BEDTIME.
     Route: 048
  23. NICOTINE INHALER CART [Concomitant]
     Indication: PRODUCT USED FOR UNKNOWN INDICATION
     Dosage: 1 EACH INHALER AS NEEDED
     Route: 011
  24. CLOZARIL [Suspect]
     Active Substance: CLOZAPINE
     Indication: PRODUCT USED FOR UNKNOWN INDICATION
     Dosage: 56.25MG/DAY, TWO AND 1 QUATER TABLET AT BEDTIME
     Route: 048
     Dates: start: 20210404
  25. NICOTINE GUM [Concomitant]
     Active Substance: NICOTINE
     Indication: PRODUCT USED FOR UNKNOWN INDICATION
     Dosage: 1 EACH BUCALLY EVERY 1 HOUR AS NEEDED.
     Route: 002
  26. NICOTINE TRANSDERMAL SYSTEM [Concomitant]
     Active Substance: NICOTINE
     Indication: PRODUCT USED FOR UNKNOWN INDICATION
     Dosage: 1 PATCH TOPICALLY DAILY AS NEEDED.
     Route: 061
  27. BENZTROPINE 2MG/2ML INJ [Concomitant]
     Indication: PRODUCT USED FOR UNKNOWN INDICATION
     Dosage: 2MG/2ML INJ, 1?2 MG INTRAMUSCULAR TWICE A DAY AS NEEDED IF NOT GIVING TO BY MOUTH.
     Route: 030
  28. DIMENHYDRINATE. [Concomitant]
     Active Substance: DIMENHYDRINATE
     Indication: PRODUCT USED FOR UNKNOWN INDICATION
     Dosage: AS NEEDED
     Route: 048

REACTIONS (4)
  - Mean platelet volume [Unknown]
  - White blood cell count decreased [Unknown]
  - Benign ethnic neutropenia [Unknown]
  - Lymphocyte count decreased [Unknown]
